FAERS Safety Report 15706306 (Version 1)
Quarter: 2018Q4

REPORT INFORMATION
  Report Type: Report from Study
  Country: IE (occurrence: IE)
  Receive Date: 20181210
  Receipt Date: 20181210
  Transmission Date: 20190205
  Serious: Yes (Other)
  Sender: FDA-Public Use
  Company Number: IE-JNJFOC-20180907969

PATIENT
  Age: 56 Year
  Sex: Male

DRUGS (5)
  1. STELARA [Suspect]
     Active Substance: USTEKINUMAB
     Indication: PSORIASIS
     Dosage: FREQUENCY: AS PER PRESCRIPTION
     Route: 058
     Dates: start: 20141111
  2. LISINOPRIL. [Concomitant]
     Active Substance: LISINOPRIL
     Route: 050
  3. BETNOVATE [Concomitant]
     Active Substance: BETAMETHASONE
     Route: 050
  4. BETMIGA [Concomitant]
     Active Substance: MIRABEGRON
     Route: 050
  5. AMLODE [Concomitant]
     Active Substance: AMLODIPINE BESYLATE
     Route: 050

REACTIONS (1)
  - Lower respiratory tract infection [Recovered/Resolved]

NARRATIVE: CASE EVENT DATE: 20180906
